FAERS Safety Report 20428528 (Version 2)
Quarter: 2022Q2

REPORT INFORMATION
  Report Type: Report from Study
  Country: CN (occurrence: CN)
  Receive Date: 20220204
  Receipt Date: 20220525
  Transmission Date: 20220721
  Serious: Yes (Death, Other)
  Sender: FDA-Public Use
  Company Number: CN-AMGEN-CHNSL2022004464

PATIENT
  Age: 52 Year
  Sex: Female

DRUGS (2)
  1. XGEVA [Suspect]
     Active Substance: DENOSUMAB
     Indication: Breast cancer metastatic
     Dosage: 120 MILLIGRAM, QMO
     Route: 065
     Dates: start: 20220107
  2. XGEVA [Suspect]
     Active Substance: DENOSUMAB
     Indication: Metastases to bone

REACTIONS (6)
  - Breast cancer metastatic [Fatal]
  - Liver injury [Unknown]
  - Renal injury [Unknown]
  - Gallbladder injury [Unknown]
  - Bone disorder [Unknown]
  - Asthenia [Unknown]
